FAERS Safety Report 5368622-1 (Version None)
Quarter: 2007Q2

REPORT INFORMATION
  Report Type: 
  Country: None (occurrence: None)
  Receive Date: 20070625
  Receipt Date: 20070611
  Transmission Date: 20071010
  Serious: Yes (Hospitalization)
  Sender: FDA-Public Use
  Company Number: DE-AMGEN-UK229949

PATIENT

DRUGS (4)
  1. NEUPOGEN [Suspect]
     Indication: CHEMOTHERAPY
     Route: 065
  2. FLUOROURACIL [Concomitant]
     Route: 042
     Dates: start: 20070503, end: 20070503
  3. CYCLOPHOSPHAMIDE [Concomitant]
     Route: 042
     Dates: start: 20070503, end: 20070503
  4. EPIRUBICIN [Concomitant]
     Route: 042
     Dates: start: 20070503, end: 20070503

REACTIONS (1)
  - BACK PAIN [None]
